FAERS Safety Report 15647216 (Version 1)
Quarter: 2018Q4

REPORT INFORMATION
  Report Type: Report from Study
  Country: CO (occurrence: CO)
  Receive Date: 20181122
  Receipt Date: 20181122
  Transmission Date: 20190205
  Serious: Yes (Hospitalization, Other)
  Sender: FDA-Public Use
  Company Number: CO-ASTELLAS-2018US049900

PATIENT
  Sex: Male

DRUGS (1)
  1. TACROLIMUS. [Suspect]
     Active Substance: TACROLIMUS
     Indication: RENAL TRANSPLANT
     Route: 048
     Dates: start: 20180823

REACTIONS (6)
  - Hypotension [Recovered/Resolved with Sequelae]
  - Peritonitis [Unknown]
  - Renal impairment [Unknown]
  - Vomiting [Recovered/Resolved with Sequelae]
  - Treatment noncompliance [Unknown]
  - Abdominal pain upper [Recovered/Resolved with Sequelae]
